FAERS Safety Report 16972330 (Version 5)
Quarter: 2020Q1

REPORT INFORMATION
  Report Type: Spontaneous
  Country: US (occurrence: US)
  Receive Date: 20191029
  Receipt Date: 20200109
  Transmission Date: 20200409
  Serious: Yes (Hospitalization, Other)
  Sender: FDA-Public Use
  Company Number: US-AMGEN INC.-USASP2019178153

PATIENT
  Age: 59 Year
  Sex: Female
  Weight: 66.21 kg

DRUGS (22)
  1. AIMOVIG [Suspect]
     Active Substance: ERENUMAB-AOOE
     Dosage: 70 MILLIGRAM, QMO
     Route: 058
     Dates: start: 20190312, end: 20190512
  2. DICLOFENAC POTASSIUM. [Concomitant]
     Active Substance: DICLOFENAC POTASSIUM
     Indication: HEADACHE
     Dosage: 1 DOSAGE FORM, BID AS NEEDED
     Route: 048
  3. CYANOCOBALAMIN. [Concomitant]
     Active Substance: CYANOCOBALAMIN
     Dosage: 1000 MICROGRAM, QMO
  4. ZONISAMIDE. [Concomitant]
     Active Substance: ZONISAMIDE
     Dosage: 25 MILLIGRAM, BID
     Route: 048
  5. AIMOVIG [Suspect]
     Active Substance: ERENUMAB-AOOE
     Dosage: 140 MILLIGRAM, QMO
     Route: 058
     Dates: start: 20190616, end: 20190712
  6. PLAQUENIL [Concomitant]
     Active Substance: HYDROXYCHLOROQUINE SULFATE
     Dosage: 100 MILLIGRAM, QD
  7. DHEA [Concomitant]
     Active Substance: PRASTERONE
     Dosage: 25 MILLIGRAM, BID
  8. PROGESTERONE. [Concomitant]
     Active Substance: PROGESTERONE
     Dosage: 50 MILLIGRAM IN EVENING
  9. NORCO [Concomitant]
     Active Substance: ACETAMINOPHEN\HYDROCODONE BITARTRATE
     Indication: HEADACHE
     Dosage: 1 DOSAGE FORM, BID, AS NEEDED
     Route: 048
  10. COLCHICINE. [Concomitant]
     Active Substance: COLCHICINE
     Dosage: 0.6 MILLIGRAM, BID
  11. OMEGA 3 [DOCOSAHEXAENOIC ACID;EICOSAPENTAENOIC ACID;TOCOPHEROL] [Concomitant]
     Active Substance: DOCONEXENT\ICOSAPENT\TOCOPHEROL
     Dosage: BID
  12. BENTYL [Concomitant]
     Active Substance: DICYCLOMINE HYDROCHLORIDE
     Dosage: 1 CAPSULE FOUR TIMES A DAY
     Route: 048
  13. BOTOX [Concomitant]
     Active Substance: ONABOTULINUMTOXINA
     Indication: MIGRAINE
     Dosage: UNK
     Dates: start: 20140912
  14. AIMOVIG [Suspect]
     Active Substance: ERENUMAB-AOOE
     Indication: MIGRAINE PROPHYLAXIS
     Dosage: 70 MILLIGRAM, QMO
     Route: 058
     Dates: start: 20180901
  15. PREDNISONE. [Concomitant]
     Active Substance: PREDNISONE
     Indication: HEADACHE
     Dosage: 3 TABLETS ON DAY 1, 2 TABLETS ON DAY 2, 1 TABLET ON DAY 3
     Route: 048
  16. PANTOPRAZOLE SODIUM. [Concomitant]
     Active Substance: PANTOPRAZOLE SODIUM
     Dosage: 40 MILLIGRAM, BID
     Route: 048
  17. ONDANSETRON HCL [Concomitant]
     Active Substance: ONDANSETRON HYDROCHLORIDE
     Dosage: UNK
  18. REGLAN [Concomitant]
     Active Substance: METOCLOPRAMIDE HYDROCHLORIDE
     Dosage: BIDD
  19. FIORICET [Concomitant]
     Active Substance: ACETAMINOPHEN\BUTALBITAL\CAFFEINE
     Indication: HEADACHE
     Dosage: 1 DOSAGE FORM, BID, AS NEEDED
     Route: 048
  20. AMBIEN [Concomitant]
     Active Substance: ZOLPIDEM TARTRATE
     Dosage: 5 MILLIGRAM, AS NECESSARY
  21. PROBIOTIC [BIFIDOBACTERIUM LACTIS] [Concomitant]
     Active Substance: BIFIDOBACTERIUM ANIMALIS LACTIS
     Dosage: BID
  22. CALCIUM [Concomitant]
     Active Substance: CALCIUM
     Dosage: UNK UNK, BID

REACTIONS (2)
  - Behcet^s syndrome [Recovered/Resolved]
  - Small intestinal obstruction [Recovered/Resolved]

NARRATIVE: CASE EVENT DATE: 20180901
